FAERS Safety Report 9424467 (Version 1)
Quarter: 2013Q3

REPORT INFORMATION
  Report Type: Spontaneous
  Country: US (occurrence: None)
  Receive Date: 20130725
  Receipt Date: 20130725
  Transmission Date: 20140515
  Serious: Yes (Hospitalization)
  Sender: FDA-Public Use
  Company Number: 2012UCU075000352

PATIENT
  Age: 49 Year
  Sex: Female

DRUGS (29)
  1. CIMZIA [Suspect]
     Indication: CROHN^S DISEASE
     Dates: start: 20091109, end: 201103
  2. METHOTREXATE [Suspect]
     Dates: start: 20110503
  3. MESALAMINE [Concomitant]
  4. METRONIDAZOLE [Concomitant]
  5. LEVOFLOXACIN [Concomitant]
  6. PREDNISONE [Concomitant]
  7. BUDESONIDE [Concomitant]
  8. 6-MP [Concomitant]
  9. AZATHIOPRINE [Concomitant]
  10. INFLIXIMAB [Concomitant]
  11. ADALIMUMAB [Concomitant]
  12. STELARA [Concomitant]
  13. LOPERAMIDE [Concomitant]
  14. AMITRIPTYLINE [Concomitant]
  15. ALLEGRA [Concomitant]
  16. BENADRYL [Concomitant]
  17. CEFEPIME [Concomitant]
  18. CEFTRIAXONE [Concomitant]
  19. CIPROFLOXACIN [Concomitant]
  20. CITALOPRAM [Concomitant]
  21. CLONAZEPAM [Concomitant]
  22. FENTANYL [Concomitant]
  23. FOLIC ACID [Concomitant]
  24. HEPARIN FLUSH [Concomitant]
  25. HEPARIN [Concomitant]
  26. IRON SUCROSE [Concomitant]
  27. KETOROLAC [Concomitant]
  28. CYANOCOBALAMIN [Concomitant]
  29. FENTANYL [Concomitant]

REACTIONS (3)
  - Septic shock [None]
  - Klebsiella test positive [None]
  - Device related infection [None]
